FAERS Safety Report 18929028 (Version 1)
Quarter: 2021Q1

REPORT INFORMATION
  Report Type: Report from Study
  Country: IL (occurrence: IL)
  Receive Date: 20210223
  Receipt Date: 20210223
  Transmission Date: 20210420
  Serious: Yes (Other)
  Sender: FDA-Public Use
  Company Number: IL-TAKEDA-2021TUS009778

PATIENT
  Sex: Male

DRUGS (5)
  1. RAFASSAL [MESALAZINE] [Concomitant]
     Dosage: UNK
  2. BETNESOL [BETAMETHASONE SODIUM PHOSPHATE] [Concomitant]
     Active Substance: BETAMETHASONE SODIUM PHOSPHATE
     Dosage: UNK
     Dates: start: 20201223
  3. VITAMIN D NOS [Concomitant]
     Active Substance: VITAMIN D NOS
     Dosage: UNK
  4. VEDOLIZUMAB [Suspect]
     Active Substance: VEDOLIZUMAB
     Indication: COLITIS ULCERATIVE
     Dosage: 300 MILLIGRAM, Q4WEEKS
     Route: 042
     Dates: start: 20201021
  5. RAFASSAL [MESALAZINE] [Concomitant]
     Dosage: UNK
     Dates: start: 20201223

REACTIONS (2)
  - Sinusitis bacterial [Not Recovered/Not Resolved]
  - Colitis ulcerative [Recovering/Resolving]
